FAERS Safety Report 16620129 (Version 1)
Quarter: 2019Q3

REPORT INFORMATION
  Report Type: Spontaneous
  Country: US (occurrence: US)
  Receive Date: 20190723
  Receipt Date: 20190723
  Transmission Date: 20191004
  Serious: Yes (Hospitalization, Other)
  Sender: FDA-Public Use
  Company Number: US-ASTRAZENECA-2019SF01824

PATIENT
  Age: 75 Year
  Sex: Female

DRUGS (13)
  1. SINEMET [Concomitant]
     Active Substance: CARBIDOPA\LEVODOPA
  2. LOTEMAX [Concomitant]
     Active Substance: LOTEPREDNOL ETABONATE
  3. SEROQUEL [Suspect]
     Active Substance: QUETIAPINE FUMARATE
     Route: 048
  4. ALPHAGAN P [Concomitant]
     Active Substance: BRIMONIDINE TARTRATE
  5. AZOPT [Concomitant]
     Active Substance: BRINZOLAMIDE
  6. ZANTAC [Concomitant]
     Active Substance: RANITIDINE HYDROCHLORIDE
  7. RESTASIS [Concomitant]
     Active Substance: CYCLOSPORINE
  8. LORAZEPAM. [Concomitant]
     Active Substance: LORAZEPAM
  9. LINZESS [Suspect]
     Active Substance: LINACLOTIDE
     Route: 048
  10. DOMPERIDONE [Concomitant]
     Active Substance: DOMPERIDONE
  11. DUOPA [Suspect]
     Active Substance: CARBIDOPA\LEVODOPA
     Route: 062
     Dates: start: 20180906
  12. SINEMET [Concomitant]
     Active Substance: CARBIDOPA\LEVODOPA
  13. ESTRACE [Concomitant]
     Active Substance: ESTRADIOL

REACTIONS (8)
  - Stoma site irritation [Not Recovered/Not Resolved]
  - Abdominal pain [Recovering/Resolving]
  - Lipase increased [Recovering/Resolving]
  - Pancreatitis [Unknown]
  - Stoma site haemorrhage [Unknown]
  - Device occlusion [Unknown]
  - Stoma site erythema [Not Recovered/Not Resolved]
  - Drug hypersensitivity [Unknown]

NARRATIVE: CASE EVENT DATE: 2019
